FAERS Safety Report 13682493 (Version 2)
Quarter: 2017Q3

REPORT INFORMATION
  Report Type: Spontaneous
  Country: RU (occurrence: RU)
  Receive Date: 20170623
  Receipt Date: 20170728
  Transmission Date: 20171127
  Serious: Yes (Hospitalization)
  Sender: FDA-Public Use
  Company Number: RU-JNJFOC-20170620097

PATIENT
  Age: 75 Year
  Sex: Female
  Weight: 65 kg

DRUGS (6)
  1. XARELTO [Suspect]
     Active Substance: RIVAROXABAN
     Indication: ATRIAL FIBRILLATION
     Route: 048
  2. CONCOR [Concomitant]
     Active Substance: BISOPROLOL FUMARATE
     Route: 065
  3. XARELTO [Suspect]
     Active Substance: RIVAROXABAN
     Indication: CEREBROVASCULAR ACCIDENT PROPHYLAXIS
     Route: 048
  4. LIPRIMAR [Concomitant]
     Active Substance: ATORVASTATIN CALCIUM
     Route: 065
  5. ARIFON [Concomitant]
     Route: 065
  6. NORVASC [Concomitant]
     Active Substance: AMLODIPINE BESYLATE
     Route: 065

REACTIONS (3)
  - Drug ineffective [Unknown]
  - Pulmonary embolism [Recovered/Resolved]
  - Suspected counterfeit product [Unknown]

NARRATIVE: CASE EVENT DATE: 201612
